FAERS Safety Report 5154697-1 (Version None)
Quarter: 2006Q4

REPORT INFORMATION
  Report Type: 
  Country: None (occurrence: None)
  Receive Date: 20061114
  Receipt Date: 20061031
  Transmission Date: 20070319
  Serious: Yes (Death, Life-Threatening, Other)
  Sender: FDA-Public Use
  Company Number: 2004017260

PATIENT
  Age: 26 Year
  Sex: Female

DRUGS (4)
  1. GEODON [Suspect]
     Indication: BIPOLAR DISORDER
     Dosage: 802 MG (2 IN 1 D ) , UNKNOWN
     Dates: start: 20021101
  2. PROZAC [Suspect]
     Indication: ANXIETY
     Dosage: (10 MG, 1 IN 1 D), UNKNOWN
     Dates: start: 20030123, end: 20030501
  3. ABILIFY [Suspect]
     Indication: ILL-DEFINED DISORDER
     Dates: start: 20030901
  4. LAMICTAL [Suspect]
     Indication: ILL-DEFINED DISORDER

REACTIONS (34)
  - AKATHISIA [None]
  - ALCOHOL USE [None]
  - ANXIETY [None]
  - ARRHYTHMIA [None]
  - CRYING [None]
  - DEPRESSION [None]
  - DRUG ABUSER [None]
  - DRUG EFFECT DECREASED [None]
  - ECONOMIC PROBLEM [None]
  - EUPHORIC MOOD [None]
  - FATIGUE [None]
  - FEELING ABNORMAL [None]
  - HALLUCINATION, AUDITORY [None]
  - HEADACHE [None]
  - HYPERSOMNIA [None]
  - INCREASED APPETITE [None]
  - INSOMNIA [None]
  - IRRITABILITY [None]
  - LOGORRHOEA [None]
  - LOSS OF CONSCIOUSNESS [None]
  - MANIA [None]
  - MEMORY IMPAIRMENT [None]
  - MOOD SWINGS [None]
  - PALPITATIONS [None]
  - RESTLESSNESS [None]
  - SEDATION [None]
  - STRESS [None]
  - SUDDEN CARDIAC DEATH [None]
  - SUICIDAL IDEATION [None]
  - TACHYPHRENIA [None]
  - TENSION [None]
  - TREATMENT NONCOMPLIANCE [None]
  - VOMITING [None]
  - WEIGHT INCREASED [None]
